FAERS Safety Report 19237738 (Version 1)
Quarter: 2021Q2

REPORT INFORMATION
  Report Type: Spontaneous
  Country: US (occurrence: US)
  Receive Date: 20210510
  Receipt Date: 20210510
  Transmission Date: 20210717
  Serious: No
  Sender: FDA-Public Use
  Company Number: US-GLAXOSMITHKLINE-US2021097915

PATIENT
  Sex: Female

DRUGS (3)
  1. BREO ELLIPTA [Suspect]
     Active Substance: FLUTICASONE FUROATE\VILANTEROL TRIFENATATE
     Indication: PRODUCT USED FOR UNKNOWN INDICATION
     Dosage: UNK, UNK, QD, 100/25 MCG, FOR SOME TIME
     Route: 055
  2. AZELASTINE NASAL SPRAY [Concomitant]
     Active Substance: AZELASTINE
     Indication: PRODUCT USED FOR UNKNOWN INDICATION
     Dosage: UNK
  3. FLUTICASONE NASAL SPRAY [Concomitant]
     Active Substance: FLUTICASONE
     Indication: PRODUCT USED FOR UNKNOWN INDICATION
     Dosage: UNK

REACTIONS (8)
  - Muscle spasms [Unknown]
  - Muscular weakness [Recovered/Resolved]
  - Cough [Unknown]
  - Abdominal pain upper [Unknown]
  - Productive cough [Unknown]
  - Total lung capacity abnormal [Unknown]
  - Trismus [Unknown]
  - Wheezing [Unknown]
